FAERS Safety Report 8630509 (Version 4)
Quarter: 2012Q4

REPORT INFORMATION
  Report Type: 
  Country: GB (occurrence: GB)
  Receive Date: 20120622
  Receipt Date: 20121019
  Transmission Date: 20130627
  Serious: Yes (Death)
  Sender: FDA-Public Use
  Company Number: GB-ROCHE-1080806

PATIENT
  Sex: Female
  Weight: 37.2 kg

DRUGS (15)
  1. LUCENTIS [Suspect]
     Indication: PRODUCT USED FOR UNKNOWN INDICATION
     Dosage: 3 injections in right eye
     Route: 050
  2. FERROUS FUMARATE [Concomitant]
     Route: 065
     Dates: start: 20120502
  3. LEVOTHYROXINE SODIUM [Concomitant]
     Route: 065
     Dates: start: 20120502
  4. ASPIRIN [Concomitant]
     Route: 065
     Dates: start: 20120502
  5. INADINE [Concomitant]
     Route: 065
     Dates: start: 20120426
  6. PARACETAMOL [Concomitant]
     Route: 065
     Dates: start: 20120216
  7. SUDOCREM [Concomitant]
     Route: 065
     Dates: start: 20120502
  8. CALOGEN (UNITED KINGDOM) [Concomitant]
     Route: 065
     Dates: start: 20120312
  9. SODIUM CHLORIDE [Concomitant]
     Dosage: 0.9%
     Route: 065
     Dates: start: 20120426
  10. COSMOFER [Concomitant]
     Route: 065
     Dates: start: 20120426
  11. TRIMOVATE [Concomitant]
     Route: 065
     Dates: start: 20120313
  12. AMOXICILLIN [Concomitant]
     Route: 065
     Dates: start: 20120411
  13. AMOXICILLIN\CLAVULANATE POTASSIUM [Concomitant]
     Route: 065
     Dates: start: 20120430
  14. LAMISIL [Concomitant]
     Dosage: cream 1%
     Route: 065
     Dates: start: 20120327
  15. CLARITHROMYCIN [Concomitant]
     Route: 065
     Dates: start: 20120516

REACTIONS (2)
  - Bronchopneumonia [Fatal]
  - Body mass index decreased [Unknown]
